FAERS Safety Report 5098532-9 (Version None)
Quarter: 2006Q3

REPORT INFORMATION
  Report Type: 
  Country: None (occurrence: None)
  Receive Date: 20060906
  Receipt Date: 20060220
  Transmission Date: 20061208
  Serious: No
  Sender: FDA-Public Use
  Company Number: US-GLAXOSMITHKLINE-A0594397A

PATIENT
  Age: 66 Year
  Sex: Female

DRUGS (6)
  1. REQUIP [Suspect]
     Indication: RESTLESS LEGS SYNDROME
     Dosage: 9MG VARIABLE DOSE
     Route: 048
  2. BACLOFEN [Concomitant]
  3. ATENOLOL [Concomitant]
  4. CAPTOPRIL [Concomitant]
  5. ASPIRIN [Concomitant]
  6. NEURONTIN [Concomitant]
     Dates: start: 20060101

REACTIONS (4)
  - DRUG INEFFECTIVE [None]
  - NAUSEA [None]
  - OVERDOSE [None]
  - PALPITATIONS [None]
